FAERS Safety Report 4875860-0 (Version None)
Quarter: 2006Q1

REPORT INFORMATION
  Report Type: 
  Country: None (occurrence: None)
  Receive Date: 20060109
  Receipt Date: 20060103
  Transmission Date: 20060701
  Serious: Yes (Life-Threatening, Other)
  Sender: FDA-Public Use
  Company Number: GB-MERCK-0601GBR00002

PATIENT
  Age: 47 Year
  Sex: Female

DRUGS (3)
  1. ZOCOR [Suspect]
     Route: 048
     Dates: start: 20051103
  2. INSULIN ASPART [Concomitant]
     Route: 058
     Dates: start: 20031001
  3. INSULIN GLARGINE [Concomitant]
     Route: 058
     Dates: start: 20031001

REACTIONS (1)
  - HYPOGLYCAEMIA [None]
